FAERS Safety Report 6071060-X (Version None)
Quarter: 2009Q1

REPORT INFORMATION
  Report Type: 
  Country: None (occurrence: None)
  Receive Date: 20090209
  Receipt Date: 20080718
  Transmission Date: 20090719
  Serious: No
  Sender: FDA-Public Use
  Company Number: A0738445A

PATIENT
  Age: 32 Year
  Sex: Male

DRUGS (3)
  1. PAXIL CR [Suspect]
     Dosage: 37.5MG PER DAY
     Route: 048
     Dates: start: 20080717
  2. PAXIL [Suspect]
     Dosage: 37.5MG PER DAY
     Route: 048
     Dates: start: 20070101, end: 20080716
  3. NONE [Concomitant]

REACTIONS (1)
  - SLUGGISHNESS [None]
